FAERS Safety Report 4269844-3 (Version None)
Quarter: 2004Q1

REPORT INFORMATION
  Report Type: 
  Country: None (occurrence: None)
  Receive Date: 20040113
  Receipt Date: 20040113
  Transmission Date: 20041129
  Serious: Yes (Hospitalization)
  Sender: FDA-Public Use
  Company Number: None

PATIENT
  Age: 62 Year
  Sex: Male

DRUGS (7)
  1. FOSINOPRIL SODIUM [Suspect]
     Indication: HYPERTENSION
     Dosage: 400 MG QD
     Dates: start: 19971201
  2. ATENOLOL [Suspect]
     Indication: HYPERTENSION
     Dosage: 25 MG QD
     Dates: start: 20030609
  3. DILTIAZEM [Suspect]
     Indication: HYPERTENSION
     Dosage: 360 MG QD
     Dates: start: 20000601
  4. GLYBURIDE [Concomitant]
  5. METFORMIN HCL [Concomitant]
  6. ZOCOR [Concomitant]
  7. IBUPROFEN [Concomitant]

REACTIONS (2)
  - BRADYCARDIA [None]
  - HYPOTENSION [None]
